FAERS Safety Report 5976412-1 (Version None)
Quarter: 2008Q4

REPORT INFORMATION
  Report Type: 
  Country: None (occurrence: None)
  Receive Date: 20081202
  Receipt Date: 20081120
  Transmission Date: 20090506
  Serious: Yes (Death)
  Sender: FDA-Public Use
  Company Number: NL-ELI_LILLY_AND_COMPANY-NL200811001482

PATIENT
  Sex: Male
  Weight: 64 kg

DRUGS (9)
  1. CYMBALTA [Suspect]
     Indication: NEURALGIA
     Dosage: 60 MG, UNKNOWN
     Route: 048
     Dates: start: 20080911
  2. FUROSEMIDE [Concomitant]
     Dosage: UNK, UNKNOWN
     Route: 065
  3. PREDNISOLONE [Concomitant]
     Dosage: UNK, UNKNOWN
     Route: 065
  4. ACETYLSALICYLIC ACID SRT [Concomitant]
     Dosage: UNK, UNKNOWN
     Route: 065
  5. FENTANYL-100 [Concomitant]
     Dosage: UNK, UNKNOWN
     Route: 065
  6. ZITHROMAX [Concomitant]
     Dosage: UNK, UNKNOWN
     Route: 065
  7. ISOSORBIDE [Concomitant]
     Dosage: UNK, UNKNOWN
     Route: 065
  8. ACTONEL [Concomitant]
     Dosage: UNK, UNKNOWN
     Route: 065
  9. MOVICOL [Concomitant]
     Dosage: UNK, UNKNOWN
     Route: 065

REACTIONS (1)
  - DEATH [None]
